FAERS Safety Report 7048343-X (Version None)
Quarter: 2010Q4

REPORT INFORMATION
  Report Type: 
  Country: None (occurrence: None)
  Receive Date: 20101015
  Receipt Date: 20101004
  Transmission Date: 20110411
  Serious: Yes (Other)
  Sender: FDA-Public Use
  Company Number: JP-ROCHE-657367

PATIENT
  Sex: Male

DRUGS (5)
  1. AVASTIN [Suspect]
     Indication: RECTAL CANCER RECURRENT
     Route: 041
     Dates: start: 20090912, end: 20090912
  2. FLUOROURACIL [Suspect]
     Indication: RECTAL CANCER RECURRENT
     Dosage: ROUTE: INTRAVENOUS BOLUS
     Route: 042
     Dates: start: 20090912, end: 20090912
  3. FLUOROURACIL [Suspect]
     Dosage: ROUTE: INTRAVENOUS DRIP
     Route: 042
     Dates: start: 20090912, end: 20090914
  4. IRINOTECAN HYDROCHLORIDE [Suspect]
     Indication: RECTAL CANCER RECURRENT
     Route: 041
     Dates: start: 20090912, end: 20090912
  5. CALCIUM LEVOFOLINATE [Concomitant]
     Route: 041
     Dates: start: 20090912, end: 20090912

REACTIONS (1)
  - REVERSIBLE POSTERIOR LEUKOENCEPHALOPATHY SYNDROME [None]
